FAERS Safety Report 8174721 (Version 3)
Quarter: 2016Q1

REPORT INFORMATION
  Report Type: Spontaneous
  Country: JP (occurrence: JP)
  Receive Date: 20111010
  Receipt Date: 20160218
  Transmission Date: 20160526
  Serious: No
  Sender: FDA-Public Use
  Company Number: JP-BRISTOL-MYERS SQUIBB COMPANY-16136533

PATIENT
  Age: 28 Year
  Sex: Female
  Weight: 57 kg

DRUGS (6)
  1. BRIPLATIN [Suspect]
     Active Substance: CISPLATIN
     Indication: OVARIAN CYST
     Dosage: 32 MG, UNK
     Route: 042
     Dates: start: 20100510, end: 20100813
  2. BLEO [Suspect]
     Active Substance: BLEOMYCIN HYDROCHLORIDE
     Indication: TERATOMA
  3. BRIPLATIN [Suspect]
     Active Substance: CISPLATIN
     Indication: TERATOMA
  4. BLEO [Suspect]
     Active Substance: BLEOMYCIN HYDROCHLORIDE
     Indication: OVARIAN CYST
     Dosage: 30 MG, UNK
     Route: 065
     Dates: start: 20100511, end: 20100810
  5. VEPESID [Suspect]
     Active Substance: ETOPOSIDE
     Indication: OVARIAN CYST
     Dosage: 160 MG, UNK
     Route: 042
     Dates: start: 20100510, end: 20100813
  6. VEPESID [Suspect]
     Active Substance: ETOPOSIDE
     Indication: TERATOMA

REACTIONS (4)
  - Maternal exposure during pregnancy [Recovered/Resolved]
  - Premature delivery [Recovered/Resolved]
  - Neutrophil count decreased [Recovered/Resolved]
  - Caesarean section [Unknown]

NARRATIVE: CASE EVENT DATE: 20100614
